FAERS Safety Report 9169546 (Version 2)
Quarter: 2013Q2

REPORT INFORMATION
  Report Type: Spontaneous
  Country: US (occurrence: US)
  Receive Date: 20130318
  Receipt Date: 20130415
  Transmission Date: 20140414
  Serious: Yes (Death)
  Sender: FDA-Public Use
  Company Number: US-MILLENNIUM PHARMACEUTICALS, INC.-2013-02168

PATIENT
  Sex: 0

DRUGS (1)
  1. VELCADE [Suspect]
     Indication: THYROID CANCER
     Dosage: UNK
     Dates: start: 2009

REACTIONS (3)
  - Death [Fatal]
  - Neuropathy peripheral [Unknown]
  - Off label use [Unknown]
